FAERS Safety Report 9516639 (Version 1)
Quarter: 2013Q1

REPORT INFORMATION
  Report Type: Spontaneous
  Country: US (occurrence: None)
  Receive Date: 20130305
  Receipt Date: 20130305
  Transmission Date: 20140127
  Serious: Yes (Hospitalization)
  Sender: FDA-Public Use
  Company Number: 163-21880-12011372

PATIENT
  Age: 62 Year
  Sex: Male

DRUGS (4)
  1. REVLIMID (LENALIDOMIDE) (CAPSULES) [Suspect]
     Indication: PLASMA CELL MYELOMA
     Dosage: 25 MG, X 14 CAPS, PO
     Dates: start: 20110728
  2. BENADRYL ALLERGY CHILDRENS(DIPHENHYDRAMINE [Concomitant]
  3. FLAGYL(METRONIDAZOLE)(UNKNOWN) [Concomitant]
  4. PRILOSEC [Suspect]

REACTIONS (1)
  - Pneumonia [None]
